FAERS Safety Report 13694806 (Version 1)
Quarter: 2017Q2

REPORT INFORMATION
  Report Type: Spontaneous
  Country: GR (occurrence: GR)
  Receive Date: 20170627
  Receipt Date: 20170627
  Transmission Date: 20170830
  Serious: Yes (Other)
  Sender: FDA-Public Use
  Company Number: GR-SA-2017SA109820

PATIENT
  Age: 50 Year
  Sex: Male

DRUGS (2)
  1. ZALTRAP [Suspect]
     Active Substance: ZIV-AFLIBERCEPT
     Dosage: DOSE:25 MILLIGRAM(S)/MILLILITRE
     Route: 042
  2. ZALTRAP [Suspect]
     Active Substance: ZIV-AFLIBERCEPT
     Dosage: DOSE:25 MILLIGRAM(S)/MILLILITRE
     Route: 042

REACTIONS (2)
  - Microangiopathy [Unknown]
  - Uveitis [Unknown]
